FAERS Safety Report 9120682 (Version 5)
Quarter: 2024Q1

REPORT INFORMATION
  Report Type: Spontaneous
  Country: NO (occurrence: NO)
  Receive Date: 20130226
  Receipt Date: 20240321
  Transmission Date: 20240410
  Serious: Yes (Other)
  Sender: FDA-Public Use
  Company Number: None

PATIENT
  Age: 63 Year
  Sex: Male

DRUGS (2)
  1. PANITUMUMAB [Suspect]
     Active Substance: PANITUMUMAB
     Indication: Neuralgia
     Dosage: 6 MG/KG, UNK
     Route: 042
  2. ERBITUX [Suspect]
     Active Substance: CETUXIMAB
     Indication: Neuralgia
     Dosage: UNK UNK, Q2WK
     Route: 042

REACTIONS (7)
  - Neuralgia [Recovered/Resolved]
  - Uveitis [Recovered/Resolved]
  - Iridocyclitis [Recovered/Resolved]
  - Drug effective for unapproved indication [Unknown]
  - Off label use [Unknown]
  - Dry skin [Unknown]
  - Dermatitis acneiform [Recovering/Resolving]
